FAERS Safety Report 9133288 (Version 3)
Quarter: 2013Q2

REPORT INFORMATION
  Report Type: Spontaneous
  Country: US (occurrence: US)
  Receive Date: 20130301
  Receipt Date: 20130418
  Transmission Date: 20140414
  Serious: Yes (Death, Hospitalization, Other)
  Sender: FDA-Public Use
  Company Number: US-BAXTER-2013BAX006369

PATIENT
  Age: 85 Year
  Sex: Female

DRUGS (8)
  1. DIANEAL LOW CALCIUM [Suspect]
     Indication: PERITONEAL DIALYSIS
     Route: 033
     Dates: start: 2007, end: 20130327
  2. DIANEAL LOW CALCIUM [Suspect]
     Indication: PERITONEAL DIALYSIS
  3. DIANEAL LOW CALCIUM [Suspect]
     Indication: PERITONEAL DIALYSIS
     Route: 033
     Dates: start: 2006, end: 20130327
  4. DIANEAL LOW CALCIUM [Suspect]
     Indication: PERITONEAL DIALYSIS
  5. DIANEAL PD2 [Suspect]
     Indication: PERITONEAL DIALYSIS
     Route: 033
     Dates: end: 20130327
  6. EXTRANEAL [Suspect]
     Indication: PERITONEAL DIALYSIS
     Route: 033
     Dates: start: 2007, end: 20130327
  7. EXTRANEAL [Suspect]
     Indication: PERITONEAL DIALYSIS
  8. VANCOMYCIN [Suspect]
     Indication: PERITONITIS BACTERIAL
     Route: 065

REACTIONS (8)
  - Cardiac arrest [Fatal]
  - Mental status changes [Unknown]
  - Terminal state [Unknown]
  - Peritonitis bacterial [Recovered/Resolved]
  - Hypotension [Recovering/Resolving]
  - Peritoneal dialysis complication [Unknown]
  - Confusional state [Unknown]
  - Malaise [Unknown]
